FAERS Safety Report 16900426 (Version 2)
Quarter: 2019Q4

REPORT INFORMATION
  Report Type: Spontaneous
  Country: US (occurrence: US)
  Receive Date: 20191009
  Receipt Date: 20191114
  Transmission Date: 20200122
  Serious: No
  Sender: FDA-Public Use
  Company Number: US-ASTRAZENECA-2019SF29702

PATIENT
  Sex: Female
  Weight: 66.7 kg

DRUGS (4)
  1. SYMBICORT [Suspect]
     Active Substance: BUDESONIDE\FORMOTEROL FUMARATE DIHYDRATE
     Indication: CHRONIC OBSTRUCTIVE PULMONARY DISEASE
     Dosage: 160/4.5MCG, 2 PUFFS TWICE DAILY
     Route: 055
     Dates: start: 2014
  2. ALBUTEROL. [Concomitant]
     Active Substance: ALBUTEROL
     Indication: PULMONARY CONGESTION
     Route: 065
  3. PROAIR HFA [Concomitant]
     Active Substance: ALBUTEROL SULFATE
     Indication: CHRONIC OBSTRUCTIVE PULMONARY DISEASE
     Route: 065
  4. DILTIZEN [Concomitant]
     Indication: HEART RATE ABNORMAL
     Route: 065
     Dates: start: 2012

REACTIONS (9)
  - Circumstance or information capable of leading to medication error [Unknown]
  - Headache [Unknown]
  - Device issue [Unknown]
  - Product use issue [Unknown]
  - Chest discomfort [Unknown]
  - Dizziness [Unknown]
  - Intentional product misuse [Unknown]
  - Viral infection [Unknown]
  - Nausea [Unknown]
